FAERS Safety Report 4324556-2 (Version None)
Quarter: 2004Q1

REPORT INFORMATION
  Report Type: 
  Country: None (occurrence: None)
  Receive Date: 20040322
  Receipt Date: 20040311
  Transmission Date: 20041129
  Serious: Yes (Hospitalization, Other)
  Sender: FDA-Public Use
  Company Number: GB-JNJFOC-20040302658

PATIENT
  Age: 76 Year
  Sex: Male

DRUGS (4)
  1. REMICADE [Suspect]
     Indication: RHEUMATOID ARTHRITIS
     Dosage: 290 MG, INTRAVENOUS
     Route: 042
     Dates: start: 20030409, end: 20031101
  2. METHOTREXATE [Concomitant]
  3. FOLIC ACID [Concomitant]
  4. CO-PROXAMOL (APOREX [Concomitant]

REACTIONS (3)
  - NEUTROPENIA [None]
  - PNEUMONIA [None]
  - SEPSIS [None]
